FAERS Safety Report 8594565 (Version 3)
Quarter: 2012Q4

REPORT INFORMATION
  Report Type: 
  Country: US (occurrence: US)
  Receive Date: 20120604
  Receipt Date: 20121019
  Transmission Date: 20130627
  Serious: Yes (Other)
  Sender: FDA-Public Use
  Company Number: US-GLAXOSMITHKLINE-A0972192A

PATIENT
  Age: 68 Year
  Sex: Female

DRUGS (5)
  1. ADVAIR [Suspect]
     Indication: ASTHMA
     Dosage: 1PUFF Twice per day
     Route: 055
     Dates: start: 201203, end: 20120529
  2. SALMETEROL [Suspect]
     Route: 055
     Dates: start: 2012
  3. VERAPAMIL [Concomitant]
  4. LIPITOR [Concomitant]
  5. XOPENEX [Concomitant]

REACTIONS (2)
  - Cardiac fibrillation [Recovered/Resolved]
  - Heart rate increased [Unknown]
